FAERS Safety Report 9288052 (Version 1)
Quarter: 2013Q2

REPORT INFORMATION
  Report Type: Spontaneous
  Country: FR (occurrence: None)
  Receive Date: 20130509
  Receipt Date: 20130509
  Transmission Date: 20140414
  Serious: Yes (Hospitalization)
  Sender: FDA-Public Use
  Company Number: 2013-001362

PATIENT
  Age: 63 Year
  Sex: Female

DRUGS (2)
  1. ACTONEL (RISEDRONATE SODIUM) TABLET, UNKMG [Suspect]
     Route: 048
  2. GLUCOCORTICOIDS [Suspect]

REACTIONS (1)
  - Atypical femur fracture [None]
